FAERS Safety Report 6197283-7 (Version None)
Quarter: 2009Q2

REPORT INFORMATION
  Report Type: 
  Country: None (occurrence: None)
  Receive Date: 20090521
  Receipt Date: 20090515
  Transmission Date: 20091009
  Serious: Yes (Hospitalization)
  Sender: FDA-Public Use
  Company Number: FR-JNJFOC-20090501398

PATIENT
  Sex: Male

DRUGS (18)
  1. DURAGESIC-100 [Suspect]
     Indication: BACK PAIN
     Route: 062
  2. DURAGESIC-100 [Suspect]
     Indication: DRUG USE FOR UNKNOWN INDICATION
     Route: 062
  3. LASIX [Suspect]
     Indication: DRUG USE FOR UNKNOWN INDICATION
     Route: 048
  4. BIPRETERAX [Concomitant]
     Dosage: 4.25 MG/1.25MG ONE DOSE
     Route: 065
  5. CORDARONE [Concomitant]
     Route: 065
  6. ZOCOR [Concomitant]
     Route: 065
  7. ACETYLSALICYLATE LYSINE [Concomitant]
     Route: 065
  8. VASTAREL [Concomitant]
     Route: 065
  9. DIFFU K [Concomitant]
     Route: 065
  10. INIPOMP [Concomitant]
     Route: 065
  11. LEVOTHYROX [Concomitant]
     Route: 065
  12. FLUINDIONE [Concomitant]
     Route: 065
  13. LORAZEPAM [Concomitant]
     Route: 065
  14. ACETAMINOPHEN [Concomitant]
     Route: 065
  15. LATANOPROST [Concomitant]
     Dosage: ONE DROP IN BOTH THE EYES
     Route: 065
  16. FORLAX [Concomitant]
     Dosage: 40000 MACROGOL
     Route: 065
  17. EDUCTYL [Concomitant]
     Route: 065
  18. SERENOA REPENS [Concomitant]
     Route: 065

REACTIONS (5)
  - BENIGN PROSTATIC HYPERPLASIA [None]
  - HYPOKALAEMIA [None]
  - HYPONATRAEMIA [None]
  - HYPOTENSION [None]
  - URINARY RETENTION [None]
